FAERS Safety Report 6815449-7 (Version None)
Quarter: 2010Q2

REPORT INFORMATION
  Report Type: 
  Country: None (occurrence: None)
  Receive Date: 20100629
  Receipt Date: 20100622
  Transmission Date: 20101027
  Serious: Yes (Death, Life-Threatening)
  Sender: FDA-Public Use
  Company Number: 2010SP035031

PATIENT
  Age: 63 Year
  Sex: Female

DRUGS (2)
  1. TEMODAL [Suspect]
     Indication: MALIGNANT GLIOMA
     Dosage: 100 MG; ; PO
     Route: 048
     Dates: start: 20100121, end: 20100304
  2. FERON /05982701/ [Concomitant]

REACTIONS (2)
  - HEPATITIS B [None]
  - LYMPHOCYTE COUNT DECREASED [None]
